FAERS Safety Report 22385145 (Version 14)
Quarter: 2025Q2

REPORT INFORMATION
  Report Type: Spontaneous
  Country: US (occurrence: US)
  Receive Date: 20230530
  Receipt Date: 20250630
  Transmission Date: 20250717
  Serious: Yes (Other)
  Sender: PFIZER
  Company Number: US-PFIZER INC-PV202200132439

PATIENT
  Age: 77 Year
  Sex: Female
  Weight: 62.6 kg

DRUGS (5)
  1. IBRANCE [Suspect]
     Active Substance: PALBOCICLIB
     Indication: Breast cancer metastatic
     Route: 048
  2. IBRANCE [Suspect]
     Active Substance: PALBOCICLIB
     Route: 048
  3. IBRANCE [Suspect]
     Active Substance: PALBOCICLIB
  4. IBRANCE [Suspect]
     Active Substance: PALBOCICLIB
     Route: 048
  5. WARFARIN [Concomitant]
     Active Substance: WARFARIN

REACTIONS (11)
  - Nephrolithiasis [Recovered/Resolved]
  - Sinus disorder [Unknown]
  - Rhinorrhoea [Unknown]
  - Dizziness [Unknown]
  - Urinary tract infection [Not Recovered/Not Resolved]
  - Brain fog [Unknown]
  - Haemorrhage [Unknown]
  - Crying [Unknown]
  - Off label use [Unknown]
  - Product storage error [Unknown]
  - Poor quality product administered [Unknown]

NARRATIVE: CASE EVENT DATE: 20230705
